FAERS Safety Report 6618322-2 (Version None)
Quarter: 2010Q1

REPORT INFORMATION
  Report Type: 
  Country: None (occurrence: None)
  Receive Date: 20100302
  Receipt Date: 20100223
  Transmission Date: 20100710
  Serious: Yes (Other)
  Sender: FDA-Public Use
  Company Number: 1000011989

PATIENT
  Age: 72 Year
  Sex: Female

DRUGS (6)
  1. SAVELLA [Suspect]
     Indication: FIBROMYALGIA
     Dosage: 12.5 MG (12.5 MG, 1 IN 1 D),ORAL  25 MG (12.5 MG,2 IN 1 D),ORAL, 50 MG (25 MG,2 IN 1 D),ORAL; 100 MG
     Route: 048
     Dates: start: 20100201, end: 20100201
  2. SAVELLA [Suspect]
     Indication: FIBROMYALGIA
     Dosage: 12.5 MG (12.5 MG, 1 IN 1 D),ORAL  25 MG (12.5 MG,2 IN 1 D),ORAL, 50 MG (25 MG,2 IN 1 D),ORAL; 100 MG
     Route: 048
     Dates: start: 20100201
  3. OPANA (40 MILLIGRAM, TABLETS) [Concomitant]
  4. SYNTHROID (0.137 MILLIGRAM, TABLETS) [Concomitant]
  5. CYTOMEL (3 MILLIGRAM, TABLETS) [Concomitant]
  6. FUROSEMIDE (40 MILLIGRAM, TABLETS) [Concomitant]

REACTIONS (2)
  - MORBID THOUGHTS [None]
  - SUICIDAL IDEATION [None]
